FAERS Safety Report 13456477 (Version 1)
Quarter: 2017Q2

REPORT INFORMATION
  Report Type: Spontaneous
  Country: US (occurrence: US)
  Receive Date: 20170419
  Receipt Date: 20170419
  Transmission Date: 20170830
  Serious: No
  Sender: FDA-Public Use
  Company Number: None

PATIENT
  Age: 62 Year
  Sex: Male
  Weight: 94.35 kg

DRUGS (5)
  1. ATENOLOL. [Concomitant]
     Active Substance: ATENOLOL
  2. LOSARTAN. [Concomitant]
     Active Substance: LOSARTAN
  3. ASPIRIN. [Concomitant]
     Active Substance: ASPIRIN
  4. PIOGLITAZONE. [Suspect]
     Active Substance: PIOGLITAZONE
     Indication: HEPATIC STEATOSIS
     Dates: start: 20170321, end: 20170331
  5. URSODIOL. [Concomitant]
     Active Substance: URSODIOL

REACTIONS (4)
  - Dyspnoea [None]
  - Dizziness [None]
  - Hepatic pain [None]
  - Chest pain [None]

NARRATIVE: CASE EVENT DATE: 20170326
